FAERS Safety Report 17427992 (Version 1)
Quarter: 2020Q1

REPORT INFORMATION
  Report Type: Report from Study
  Country: None (occurrence: US)
  Receive Date: 20200218
  Receipt Date: 20200218
  Transmission Date: 20200409
  Serious: Yes (Other)
  Sender: FDA-Public Use
  Company Number: US-ABBVIE-19K-163-3201625-00

PATIENT
  Sex: Female

DRUGS (2)
  1. HUMIRA [Suspect]
     Active Substance: ADALIMUMAB
     Indication: RHEUMATOID ARTHRITIS
     Route: 058
     Dates: end: 201908
  2. HUMIRA [Suspect]
     Active Substance: ADALIMUMAB
     Route: 058
     Dates: start: 202001

REACTIONS (11)
  - Sjogren^s syndrome [Recovering/Resolving]
  - Anxiety [Recovering/Resolving]
  - Post procedural infection [Recovered/Resolved]
  - Rosacea [Recovering/Resolving]
  - Drug ineffective [Unknown]
  - Spinal fracture [Recovering/Resolving]
  - Bipolar disorder [Recovering/Resolving]
  - Depression [Recovering/Resolving]
  - Rotator cuff syndrome [Recovering/Resolving]
  - Incision site discharge [Recovered/Resolved]
  - Nephrolithiasis [Recovered/Resolved]

NARRATIVE: CASE EVENT DATE: 2015
